FAERS Safety Report 13961237 (Version 2)
Quarter: 2017Q3

REPORT INFORMATION
  Report Type: Spontaneous
  Country: US (occurrence: US)
  Receive Date: 20170912
  Receipt Date: 20170928
  Transmission Date: 20171128
  Serious: Yes (Death)
  Sender: FDA-Public Use
  Company Number: US-INTERPRAG-PM-OCA2017-00863

PATIENT

DRUGS (10)
  1. LASIX [Concomitant]
     Active Substance: FUROSEMIDE
  2. CALCIUM [Concomitant]
     Active Substance: CALCIUM
  3. VITAMIN D                          /00107901/ [Concomitant]
     Active Substance: ERGOCALCIFEROL
  4. LEVOXYL [Concomitant]
     Active Substance: LEVOTHYROXINE SODIUM
  5. ZOFRAN [Concomitant]
     Active Substance: ONDANSETRON HYDROCHLORIDE
  6. ACTIGALL [Concomitant]
     Active Substance: URSODIOL
  7. ASPIRIN EC [Concomitant]
     Active Substance: ASPIRIN
  8. OCALIVA [Suspect]
     Active Substance: OBETICHOLIC ACID
     Indication: BILIARY CIRRHOSIS PRIMARY
     Dosage: 5 MG, WEEKLY
     Route: 048
     Dates: start: 20160930, end: 201610
  9. SYNTHROID [Concomitant]
     Active Substance: LEVOTHYROXINE SODIUM
  10. ALDACTONE [Concomitant]
     Active Substance: SPIRONOLACTONE

REACTIONS (9)
  - Chronic hepatic failure [Fatal]
  - Hepatic cirrhosis [Fatal]
  - Dyspepsia [Unknown]
  - Hyponatraemia [Fatal]
  - Arthralgia [Unknown]
  - Oedema [Fatal]
  - Liver function test abnormal [Fatal]
  - Myalgia [Unknown]
  - Hyperkalaemia [Fatal]
